FAERS Safety Report 4324273-9 (Version None)
Quarter: 2004Q1

REPORT INFORMATION
  Report Type: 
  Country: None (occurrence: None)
  Receive Date: 20040326
  Receipt Date: 20040119
  Transmission Date: 20041129
  Serious: No
  Sender: FDA-Public Use
  Company Number: US-GLAXOSMITHKLINE-A0493953A

PATIENT
  Age: 11 Year
  Sex: Female

DRUGS (6)
  1. ADVAIR DISKUS 100/50 [Suspect]
     Indication: BRONCHITIS
     Dosage: 1PUFF TWICE PER DAY
     Route: 055
     Dates: start: 20040115, end: 20040118
  2. DEXTROMETHORPHAN HYDROBROMIDE [Concomitant]
  3. NAPROXEN [Concomitant]
  4. TYLENOL (CAPLET) [Concomitant]
  5. BENADRYL [Concomitant]
  6. GUAIFENESIN [Concomitant]

REACTIONS (4)
  - ABDOMINAL PAIN UPPER [None]
  - PRODUCTIVE COUGH [None]
  - RASH [None]
  - VOMITING [None]
